FAERS Safety Report 6888752-2 (Version None)
Quarter: 2010Q3

REPORT INFORMATION
  Report Type: 
  Country: None (occurrence: None)
  Receive Date: 20100730
  Receipt Date: 20071101
  Transmission Date: 20110219
  Serious: No
  Sender: FDA-Public Use
  Company Number: US-PFIZER INC-2007093016

PATIENT
  Sex: Female
  Weight: 104.54 kg

DRUGS (6)
  1. LIPITOR [Suspect]
     Indication: BLOOD CHOLESTEROL INCREASED
     Route: 048
     Dates: start: 20071029
  2. BENICAR [Concomitant]
     Indication: HYPERTENSION
  3. HYDROCHLOROTHIAZIDE [Concomitant]
     Indication: HYPERTENSION
  4. ZYRTEC [Concomitant]
     Indication: RESPIRATORY DISORDER
  5. FLONASE [Concomitant]
     Indication: RESPIRATORY DISORDER
  6. NEXIUM [Concomitant]

REACTIONS (2)
  - MYALGIA [None]
  - PAIN IN EXTREMITY [None]
